FAERS Safety Report 23281447 (Version 1)
Quarter: 2023Q4

REPORT INFORMATION
  Report Type: Spontaneous
  Country: AR (occurrence: AR)
  Receive Date: 20231211
  Receipt Date: 20231211
  Transmission Date: 20240110
  Serious: Yes (Hospitalization, Other)
  Sender: FDA-Public Use
  Company Number: AR-GLAXOSMITHKLINE-AR2023AMR083786

PATIENT

DRUGS (2)
  1. NUCALA [Suspect]
     Active Substance: MEPOLIZUMAB
     Indication: Chronic rhinosinusitis with nasal polyps
     Dosage: 100 MG/ML, MO EVERY 28 DAYS
     Route: 058
     Dates: start: 20230519
  2. NUCALA [Suspect]
     Active Substance: MEPOLIZUMAB
     Indication: Asthma

REACTIONS (2)
  - Pneumonia [Not Recovered/Not Resolved]
  - Dysphonia [Not Recovered/Not Resolved]
